FAERS Safety Report 13937108 (Version 1)
Quarter: 2017Q3

REPORT INFORMATION
  Report Type: Spontaneous
  Country: CN (occurrence: CN)
  Receive Date: 20170905
  Receipt Date: 20170905
  Transmission Date: 20171127
  Serious: Yes (Other)
  Sender: FDA-Public Use
  Company Number: CN-PFIZER INC-2017378463

PATIENT
  Age: 22 Year
  Sex: Female
  Weight: 55 kg

DRUGS (4)
  1. GLUCOSE INJECTION [Suspect]
     Active Substance: DEXTROSE
     Indication: CHEMOTHERAPY
     Dosage: 250 ML, 1X/DAY
     Dates: start: 20170510, end: 20170516
  2. FLUDARABINE PHOSPHATE. [Concomitant]
     Active Substance: FLUDARABINE PHOSPHATE
     Indication: CHEMOTHERAPY
     Dosage: 50 MG, 1X/DAY
     Route: 041
     Dates: start: 20170510, end: 20170513
  3. CYTARABINE. [Suspect]
     Active Substance: CYTARABINE
     Indication: CHEMOTHERAPY
     Dosage: 150 MG, 1X/DAY
     Dates: start: 20170510, end: 20170616
  4. SODIUM CHLORIDE. [Concomitant]
     Active Substance: SODIUM CHLORIDE
     Indication: CHEMOTHERAPY
     Dosage: 100 ML, 1X/DAY
     Dates: start: 20170510, end: 20170513

REACTIONS (2)
  - Nausea [Recovering/Resolving]
  - Anaphylactoid reaction [Recovering/Resolving]

NARRATIVE: CASE EVENT DATE: 20170512
